FAERS Safety Report 8091208-5 (Version None)
Quarter: 2012Q1

REPORT INFORMATION
  Report Type: 
  Country: None (occurrence: None)
  Receive Date: 20120129
  Receipt Date: 20111024
  Transmission Date: 20120608
  Serious: No
  Sender: FDA-Public Use
  Company Number: US-ABBOTT-11P-163-0868090-00

PATIENT
  Sex: Female

DRUGS (1)
  1. HUMIRA [Suspect]
     Indication: CROHN'S DISEASE
     Route: 058
     Dates: start: 20110701

REACTIONS (6)
  - VOMITING [None]
  - MIGRAINE [None]
  - NAUSEA [None]
  - DIARRHOEA [None]
  - PHOTOPHOBIA [None]
  - ABDOMINAL PAIN UPPER [None]
